FAERS Safety Report 6489867-3 (Version None)
Quarter: 2009Q4

REPORT INFORMATION
  Report Type: 
  Country: None (occurrence: None)
  Receive Date: 20091211
  Receipt Date: 20091130
  Transmission Date: 20100525
  Serious: No
  Sender: FDA-Public Use
  Company Number: US-B.I. PHARMACEUTICALS,INC./RIDGEFIELD-2009-BP-06943BP

PATIENT
  Sex: Female

DRUGS (9)
  1. AGGRENOX [Suspect]
     Indication: CEREBROVASCULAR ACCIDENT
     Route: 048
     Dates: start: 20090417, end: 20090616
  2. AGGRENOX [Suspect]
     Route: 048
     Dates: start: 20090617, end: 20090901
  3. ENALAPRIL [Suspect]
     Indication: BLOOD PRESSURE INCREASED
     Dosage: 20 MG
     Route: 048
  4. ZOCOR [Concomitant]
     Indication: BLOOD CHOLESTEROL INCREASED
     Dosage: 10 MG
  5. ADVAIR DISKUS 100/50 [Concomitant]
     Indication: ASTHMA
     Route: 055
  6. HYDROCHLOROTHIAZIDE [Concomitant]
     Indication: BLOOD PRESSURE INCREASED
     Dosage: 25 MG
     Route: 048
  7. ALBUTEROL [Concomitant]
     Indication: ASTHMA
     Route: 055
  8. ASPIRIN [Concomitant]
     Dosage: 81 MG
     Route: 048
  9. SIMVASTATIN [Concomitant]
     Dosage: 10 MG
     Route: 048

REACTIONS (3)
  - DYSPHONIA [None]
  - MALAISE [None]
  - NAUSEA [None]
